FAERS Safety Report 8390268-1 (Version None)
Quarter: 2012Q2

REPORT INFORMATION
  Report Type: 
  Country: None (occurrence: None)
  Receive Date: 20120529
  Receipt Date: 20120524
  Transmission Date: 20120825
  Serious: Yes (Death, Other)
  Sender: FDA-Public Use
  Company Number: GB-PFIZER INC-2012125425

PATIENT
  Age: 71 Year
  Sex: Female
  Weight: 60 kg

DRUGS (5)
  1. HYDROXYCHLOROQUINE SULFATE [Concomitant]
     Indication: PALINDROMIC RHEUMATISM
     Dosage: 200 MG, 2X/DAY
     Route: 048
  2. MELOXICAM [Concomitant]
     Indication: OSTEOARTHRITIS
     Dosage: 7.5 MG, 1X/DAY
     Route: 048
  3. LACIDIPINE [Concomitant]
     Indication: HYPERTENSION
     Dosage: 2 MG, 1X/DAY
     Route: 048
  4. ZOLPIDEM [Concomitant]
     Indication: INSOMNIA
     Dosage: 5 MG, 1X/DAY
     Route: 048
  5. SULFASALAZINE [Suspect]
     Indication: PALINDROMIC RHEUMATISM
     Dosage: 500 MG, 2X/DAY
     Route: 048
     Dates: start: 20110707, end: 20110730

REACTIONS (2)
  - DRUG RASH WITH EOSINOPHILIA AND SYSTEMIC SYMPTOMS [None]
  - MYOCARDITIS [None]
